FAERS Safety Report 15369721 (Version 1)
Quarter: 2018Q3

REPORT INFORMATION
  Report Type: Spontaneous
  Country: IT (occurrence: IT)
  Receive Date: 20180911
  Receipt Date: 20180911
  Transmission Date: 20181010
  Serious: Yes (Other)
  Sender: FDA-Public Use
  Company Number: IT-ROCHE-2182732

PATIENT
  Age: 45 Year
  Sex: Female

DRUGS (4)
  1. VALIUM [Suspect]
     Active Substance: DIAZEPAM
     Indication: INTENTIONAL SELF-INJURY
     Dosage: UNIT DOSE: 7 [DRP], STRENGTH 5 MG/ML
     Route: 048
     Dates: start: 20180627, end: 20180627
  2. TEGRETOL [Suspect]
     Active Substance: CARBAMAZEPINE
     Indication: INTENTIONAL SELF-INJURY
     Route: 048
     Dates: start: 20180627, end: 20180627
  3. KEPPRA [Suspect]
     Active Substance: LEVETIRACETAM
     Indication: INTENTIONAL SELF-INJURY
     Route: 048
     Dates: start: 20180627, end: 20180627
  4. DAPAROX [Concomitant]
     Active Substance: PAROXETINE HYDROCHLORIDE
     Route: 065

REACTIONS (3)
  - Sopor [Recovering/Resolving]
  - Drug abuse [Unknown]
  - Poisoning [Recovering/Resolving]

NARRATIVE: CASE EVENT DATE: 20180627
